FAERS Safety Report 7570700-3 (Version None)
Quarter: 2011Q2

REPORT INFORMATION
  Report Type: 
  Country: None (occurrence: None)
  Receive Date: 20110624
  Receipt Date: 20110504
  Transmission Date: 20111010
  Serious: No
  Sender: FDA-Public Use
  Company Number: US-ALLERGAN-1106147US

PATIENT
  Age: 45 Year
  Sex: Female

DRUGS (3)
  1. MASCARA [Concomitant]
  2. LATISSE [Suspect]
     Indication: GROWTH OF EYELASHES
     Dosage: 1 GTT, QHS
     Route: 061
     Dates: start: 20110204
  3. BLINK                              /00582501/ [Concomitant]
     Indication: PRODUCT USED FOR UNKNOWN INDICATION

REACTIONS (3)
  - SKIN HYPERPIGMENTATION [None]
  - DRY EYE [None]
  - THERAPEUTIC RESPONSE DECREASED [None]
